FAERS Safety Report 6518047-8 (Version None)
Quarter: 2009Q4

REPORT INFORMATION
  Report Type: 
  Country: None (occurrence: None)
  Receive Date: 20091224
  Receipt Date: 20091215
  Transmission Date: 20100525
  Serious: Yes (Other)
  Sender: FDA-Public Use
  Company Number: US-JNJFOC-20061006250

PATIENT
  Sex: Male

DRUGS (6)
  1. RISPERDAL [Suspect]
     Indication: DEPRESSION
  2. RISPERDAL [Suspect]
     Indication: BIPOLAR DISORDER
  3. RISPERDAL [Suspect]
     Indication: MANIA
  4. RISPERDAL [Suspect]
     Indication: ANXIETY
  5. RISPERDAL [Suspect]
     Indication: THINKING ABNORMAL
  6. RISPERDAL [Suspect]
     Indication: INCOHERENT

REACTIONS (3)
  - HYPERGLYCAEMIA [None]
  - TYPE 1 DIABETES MELLITUS [None]
  - WEIGHT INCREASED [None]
